FAERS Safety Report 17721508 (Version 1)
Quarter: 2020Q2

REPORT INFORMATION
  Report Type: Spontaneous
  Country: FR (occurrence: FR)
  Receive Date: 20200429
  Receipt Date: 20200429
  Transmission Date: 20200714
  Serious: Yes (Hospitalization)
  Sender: FDA-Public Use
  Company Number: FR-SUN PHARMACEUTICAL INDUSTRIES LTD-2020RR-245272

PATIENT
  Age: 24 Year
  Sex: Male

DRUGS (4)
  1. IBUPROFEN. [Suspect]
     Active Substance: IBUPROFEN
     Indication: TOOTH ABSCESS
     Dosage: 3 DOSAGE FORM, DAILY
     Route: 048
     Dates: start: 20200120, end: 20200122
  2. AMOXICILLIN. [Suspect]
     Active Substance: AMOXICILLIN
     Indication: TOOTH ABSCESS
     Dosage: 1 DOSAGE FORM, DAILY
     Route: 048
     Dates: start: 20200115, end: 20200122
  3. METRONIDAZOLE. [Suspect]
     Active Substance: METRONIDAZOLE
     Indication: TOOTH ABSCESS
     Dosage: 1 DOSAGE FORM, DAILY
     Route: 048
     Dates: start: 20200115, end: 20200122
  4. PARACETAMOL [Suspect]
     Active Substance: ACETAMINOPHEN
     Indication: TOOTH ABSCESS
     Dosage: 1 DOSAGE FORM, DAILY
     Route: 048
     Dates: start: 20200126, end: 20200126

REACTIONS (2)
  - Hepatitis [Recovered/Resolved]
  - Acute kidney injury [Recovering/Resolving]

NARRATIVE: CASE EVENT DATE: 20200129
